FAERS Safety Report 4368835-1 (Version None)
Quarter: 2004Q2

REPORT INFORMATION
  Report Type: 
  Country: None (occurrence: None)
  Receive Date: 20040601
  Receipt Date: 20040601
  Transmission Date: 20050107
  Serious: Yes (Hospitalization, Disabling)
  Sender: FDA-Public Use
  Company Number: None

PATIENT
  Sex: Female
  Weight: 28 kg

DRUGS (3)
  1. ASPIRIN [Suspect]
     Indication: CEREBROVASCULAR ACCIDENT
     Dosage: 81 MG PO BID/ CHRONIC THERAPY
     Route: 048
  2. ASPIRIN [Suspect]
     Indication: TRANSIENT ISCHAEMIC ATTACK
     Dosage: 81 MG PO BID/ CHRONIC THERAPY
     Route: 048
  3. DIPYRIDAMOLE (CHRONIC THERAPY) [Concomitant]

REACTIONS (4)
  - CEREBRAL HAEMORRHAGE [None]
  - HEADACHE [None]
  - HEMIPARESIS [None]
  - TRANSIENT ISCHAEMIC ATTACK [None]
